FAERS Safety Report 18877151 (Version 3)
Quarter: 2022Q2

REPORT INFORMATION
  Report Type: Spontaneous
  Country: US (occurrence: US)
  Receive Date: 20210211
  Receipt Date: 20220531
  Transmission Date: 20220721
  Serious: No
  Sender: FDA-Public Use
  Company Number: US-AMGEN-USASP2021020814

PATIENT
  Age: 73 Year
  Sex: Female

DRUGS (3)
  1. EVENITY [Suspect]
     Active Substance: ROMOSOZUMAB-AQQG
     Indication: Osteoporosis
     Dosage: UNK
     Route: 065
     Dates: start: 202009, end: 2021
  2. EVENITY [Suspect]
     Active Substance: ROMOSOZUMAB-AQQG
     Dosage: UNK
     Route: 065
     Dates: start: 2021, end: 202109
  3. COVID-19 VACCINE [Concomitant]
     Dosage: UNK

REACTIONS (8)
  - Intervertebral disc protrusion [Unknown]
  - Musculoskeletal stiffness [Unknown]
  - Muscle tightness [Unknown]
  - Musculoskeletal disorder [Not Recovered/Not Resolved]
  - Headache [Unknown]
  - Pain in extremity [Unknown]
  - Pruritus [Unknown]
  - Rash pruritic [Recovered/Resolved]

NARRATIVE: CASE EVENT DATE: 20210101
